FAERS Safety Report 12716837 (Version 2)
Quarter: 2016Q3

REPORT INFORMATION
  Report Type: Spontaneous
  Country: US (occurrence: SA)
  Receive Date: 20160906
  Receipt Date: 20160906
  Transmission Date: 20161109
  Serious: Yes (Other)
  Sender: FDA-Public Use
  Company Number: US-BAYER-2016-170543

PATIENT
  Age: 11 Year
  Sex: Female

DRUGS (3)
  1. GEMCITABINE [Concomitant]
     Active Substance: GEMCITABINE\GEMCITABINE HYDROCHLORIDE
     Indication: NEUROBLASTOMA
  2. NEXAVAR [Suspect]
     Active Substance: SORAFENIB
     Indication: NEUROBLASTOMA
  3. DOCETAXEL. [Concomitant]
     Active Substance: DOCETAXEL
     Indication: NEUROBLASTOMA

REACTIONS (3)
  - Urinary tract obstruction [Unknown]
  - Off label use [None]
  - Product use issue [None]
